FAERS Safety Report 9304637 (Version 1)
Quarter: 2013Q2

REPORT INFORMATION
  Report Type: Spontaneous
  Country: US (occurrence: US)
  Receive Date: 20130523
  Receipt Date: 20130523
  Transmission Date: 20140414
  Serious: No
  Sender: FDA-Public Use
  Company Number: US-BIOGENIDEC-2013BI044838

PATIENT
  Sex: Female

DRUGS (1)
  1. AVONEX [Suspect]
     Indication: MULTIPLE SCLEROSIS
     Route: 030
     Dates: start: 20010816, end: 20020501

REACTIONS (5)
  - Abdominal discomfort [Recovered/Resolved]
  - Influenza [Recovered/Resolved]
  - Pruritus [Recovered/Resolved]
  - Chills [Recovered/Resolved]
  - Pain [Recovered/Resolved]
